FAERS Safety Report 11747100 (Version 2)
Quarter: 2019Q4

REPORT INFORMATION
  Report Type: Spontaneous
  Country: US (occurrence: US)
  Receive Date: 20151117
  Receipt Date: 20191216
  Transmission Date: 20200122
  Serious: No
  Sender: FDA-Public Use
  Company Number: US-UCBSA-2015022677

PATIENT
  Sex: Female

DRUGS (3)
  1. VIMPAT [Suspect]
     Active Substance: LACOSAMIDE
     Indication: PETIT MAL EPILEPSY
  2. VIMPAT [Suspect]
     Active Substance: LACOSAMIDE
     Indication: PARTIAL SEIZURES
     Dosage: 150 MG, 2X/DAY (BID)
  3. ANTIVERT [Concomitant]
     Active Substance: MECLIZINE HYDROCHLORIDE
     Indication: DIZZINESS

REACTIONS (24)
  - Fatigue [Unknown]
  - Swelling face [Unknown]
  - Dyspepsia [Unknown]
  - Weight increased [Unknown]
  - Feeling abnormal [Unknown]
  - Headache [Unknown]
  - Tremor [Unknown]
  - Hallucination [Unknown]
  - Vision blurred [Unknown]
  - Nausea [Unknown]
  - Dizziness [Unknown]
  - Unevaluable event [Not Recovered/Not Resolved]
  - Memory impairment [Unknown]
  - Vertigo [Unknown]
  - Tooth disorder [Unknown]
  - Head discomfort [Unknown]
  - Photopsia [Unknown]
  - Vertigo positional [Unknown]
  - Pain in extremity [Unknown]
  - Anxiety [Unknown]
  - Drug ineffective [Unknown]
  - Rash [Unknown]
  - Abdominal pain upper [Unknown]
  - Abnormal dreams [Unknown]

NARRATIVE: CASE EVENT DATE: 20150827
